FAERS Safety Report 6720912-3 (Version None)
Quarter: 2010Q2

REPORT INFORMATION
  Report Type: 
  Country: None (occurrence: None)
  Receive Date: 20100512
  Receipt Date: 20100504
  Transmission Date: 20101027
  Serious: Yes (Other)
  Sender: FDA-Public Use
  Company Number: CN-JNJFOC-20100501014

PATIENT
  Sex: Female

DRUGS (1)
  1. NIZORAL [Suspect]
     Indication: ONYCHOMYCOSIS
     Route: 048

REACTIONS (2)
  - HEPATITIS [None]
  - PRODUCT COUNTERFEIT [None]
